FAERS Safety Report 9192105 (Version 2)
Quarter: 2013Q1

REPORT INFORMATION
  Report Type: Report from Study
  Country: BR (occurrence: BR)
  Receive Date: 20130327
  Receipt Date: 20130327
  Transmission Date: 20140127
  Serious: Yes (Hospitalization, Disabling, Other)
  Sender: FDA-Public Use
  Company Number: BR-BAYER-2013-025102

PATIENT
  Age: 27 Year
  Sex: Female

DRUGS (4)
  1. BETAFERON [Suspect]
     Indication: RELAPSING-REMITTING MULTIPLE SCLEROSIS
     Dosage: 1 ML, QOD
     Route: 058
     Dates: start: 200606
  2. BETAJECT COMFORT [Suspect]
     Indication: DEVICE THERAPY
  3. UNKNOWN CONTROLLED DRUG [Concomitant]
     Indication: SLEEP DISORDER
     Dosage: 75 MG, QD
     Route: 048
     Dates: start: 201301
  4. AMITRIPTYLINE [Concomitant]
     Indication: SLEEP DISORDER THERAPY
     Dosage: 1 DF, QD
     Route: 048
     Dates: start: 2006

REACTIONS (11)
  - Multiple sclerosis relapse [Not Recovered/Not Resolved]
  - Arthralgia [Not Recovered/Not Resolved]
  - Mobility decreased [Not Recovered/Not Resolved]
  - Diplopia [Recovered/Resolved]
  - Choking [Not Recovered/Not Resolved]
  - Dysphonia [Recovering/Resolving]
  - Accident [None]
  - Hypoaesthesia [Not Recovered/Not Resolved]
  - Injection site discolouration [Recovered/Resolved]
  - Injection site pain [Recovered/Resolved]
  - Injection site discomfort [Not Recovered/Not Resolved]
